FAERS Safety Report 21391011 (Version 2)
Quarter: 2022Q4

REPORT INFORMATION
  Report Type: Spontaneous
  Country: FR (occurrence: FR)
  Receive Date: 20220929
  Receipt Date: 20221020
  Transmission Date: 20230113
  Serious: No
  Sender: FDA-Public Use
  Company Number: FR-Accord-274106

PATIENT
  Age: 58 Year
  Sex: Male

DRUGS (6)
  1. FLUOROURACIL [Suspect]
     Active Substance: FLUOROURACIL
     Indication: Oropharyngeal cancer
     Dosage: STRENGTH: 50 MG/ML
     Route: 042
     Dates: start: 20220622, end: 20220803
  2. CISPLATIN [Concomitant]
     Active Substance: CISPLATIN
  3. METHYLPREDNISOLONE [Concomitant]
     Active Substance: METHYLPREDNISOLONE
  4. POLARAMINE [Concomitant]
     Active Substance: DEXCHLORPHENIRAMINE MALEATE
  5. DOCETAXEL [Concomitant]
     Active Substance: DOCETAXEL
  6. NETUPITANT\PALONOSETRON HYDROCHLORIDE [Concomitant]
     Active Substance: NETUPITANT\PALONOSETRON HYDROCHLORIDE

REACTIONS (5)
  - Product use issue [Unknown]
  - Pain in jaw [Recovering/Resolving]
  - Feeding disorder [Recovering/Resolving]
  - Decreased appetite [Recovering/Resolving]
  - Overdose [Unknown]

NARRATIVE: CASE EVENT DATE: 20220801
